FAERS Safety Report 23153259 (Version 3)
Quarter: 2024Q1

REPORT INFORMATION
  Report Type: Report from Study
  Country: US (occurrence: US)
  Receive Date: 20231107
  Receipt Date: 20240303
  Transmission Date: 20240410
  Serious: Yes (Disabling, Other)
  Sender: FDA-Public Use
  Company Number: US-ABBVIE-5477926

PATIENT
  Age: 58 Year
  Sex: Female
  Weight: 83 kg

DRUGS (10)
  1. HUMIRA [Suspect]
     Active Substance: ADALIMUMAB
     Indication: Rheumatoid arthritis
     Dosage: FORM STRENGTH: 40 MILLIGRAM
     Route: 058
     Dates: start: 20221219
  2. LOSARTAN [Concomitant]
     Active Substance: LOSARTAN
     Indication: Product used for unknown indication
     Dosage: FREQUENCY TEXT: TAKE 1 TABLET BY MOUTH ONCE DAILY
     Route: 048
  3. GABAPENTIN [Concomitant]
     Active Substance: GABAPENTIN
     Indication: Fibromyalgia
     Dosage: FREQUENCY TEXT: TAKE 1 CAPSULE BY MOUTH 3 TIMES DAILY
     Route: 048
  4. ATORVASTATIN [Concomitant]
     Active Substance: ATORVASTATIN
     Indication: Type V hyperlipidaemia
     Dosage: FREQUENCY TEXT: TAKE 1 TABLET BY MOUTH ONCE EVERY NIGHT
     Route: 048
  5. ACETAMINOPHEN\HYDROCODONE [Concomitant]
     Active Substance: ACETAMINOPHEN\HYDROCODONE
     Indication: Pain
     Dosage: 5-325 MG?FREQUENCY TEXT: TAKE 1 TABLET ONCE DAILY AS NEEDED
     Route: 048
  6. PANTOPRAZOLE [Concomitant]
     Active Substance: PANTOPRAZOLE
     Indication: Product used for unknown indication
     Dosage: FREQUENCY TEXT: TAKE 1 TABLET BY MOUTH ONCE DAILY
     Route: 048
  7. AMMONIUM LACTATE [Concomitant]
     Active Substance: AMMONIUM LACTATE
     Indication: Dry skin
     Dosage: 12 % LOTN?FREQUENCY TEXT: APPLY 1 G TO AFFECTED AREA AS NEEDED
  8. DULOXETINE [Concomitant]
     Active Substance: DULOXETINE
     Indication: Fibromyalgia
     Dosage: FREQUENCY TEXT: TAKE 1 CAPSULE BY MOUTH?ALSO USED TO TREAT RECURRENT MAJOR DEPRESSIVE DISORDER; I...
  9. ALBUTEROL [Concomitant]
     Active Substance: ALBUTEROL
     Indication: Dyspnoea
     Dosage: INHALE 2 PUFFS INTO THE LUNGS?FREQUENCY TEXT:  EVERY 4 HOURS AS NEEDED
  10. HYDROXYCHLOROQUINE [Concomitant]
     Active Substance: HYDROXYCHLOROQUINE
     Indication: Product used for unknown indication
     Dosage: FREQUENCY TEXT: TAKE 1 TABLET BY MOUTH EVERY DAY
     Route: 048

REACTIONS (16)
  - Disability [Recovering/Resolving]
  - Rheumatoid arthritis [Recovered/Resolved]
  - Fibroadenoma of breast [Unknown]
  - Haemangioma [Unknown]
  - Vitamin D deficiency [Unknown]
  - Sleep apnoea syndrome [Unknown]
  - Rheumatoid arthritis [Unknown]
  - Anxiety disorder [Unknown]
  - Antinuclear antibody positive [Unknown]
  - Rotator cuff repair [Unknown]
  - Hypothyroidism [Unknown]
  - Major depression [Unknown]
  - Immune system disorder [Unknown]
  - Gastrooesophageal reflux disease [Unknown]
  - Irritable bowel syndrome [Unknown]
  - Limb injury [Unknown]

NARRATIVE: CASE EVENT DATE: 20230601
